FAERS Safety Report 12493760 (Version 3)
Quarter: 2016Q3

REPORT INFORMATION
  Report Type: Report from Study
  Country: IT (occurrence: IT)
  Receive Date: 20160623
  Receipt Date: 20160715
  Transmission Date: 20161109
  Serious: Yes (Other)
  Sender: FDA-Public Use
  Company Number: IT-GILEAD-2016-0219697

PATIENT
  Age: 66 Year
  Sex: Male
  Weight: 70 kg

DRUGS (8)
  1. CARDIOASPIRINA [Concomitant]
     Active Substance: ASPIRIN
     Dosage: 1 DF, QD
  2. TORVAST [Concomitant]
     Active Substance: ATORVASTATIN
     Dosage: 20 MG, UNK
  3. TRIATEC                            /00116401/ [Concomitant]
     Active Substance: ACETAMINOPHEN\CODEINE PHOSPHATE
     Dosage: 7.5 MG, UNK
  4. TILDIEM [Concomitant]
     Active Substance: DILTIAZEM HYDROCHLORIDE
     Dosage: 300 UNK, UNK
  5. TENOFOVIR DISOPROXIL FUMARATE. [Suspect]
     Active Substance: TENOFOVIR DISOPROXIL FUMARATE
     Indication: HEPATITIS B
     Dosage: 245 MG, QOD
     Route: 065
  6. LIMPIDEX [Concomitant]
     Active Substance: LANSOPRAZOLE
     Dosage: 30 MG, UNK
  7. PROCORALAN [Concomitant]
     Active Substance: IVABRADINE
  8. TENOFOVIR DISOPROXIL FUMARATE. [Suspect]
     Active Substance: TENOFOVIR DISOPROXIL FUMARATE
     Dosage: 245 MG, QD
     Route: 065

REACTIONS (3)
  - Chronic kidney disease [Unknown]
  - Proteinuria [Unknown]
  - Hypophosphataemia [Unknown]
